FAERS Safety Report 4414757-7 (Version None)
Quarter: 2004Q3

REPORT INFORMATION
  Report Type: 
  Country: None (occurrence: None)
  Receive Date: 20040804
  Receipt Date: 20030822
  Transmission Date: 20050211
  Serious: No
  Sender: FDA-Public Use
  Company Number: US-BRISTOL-MYERS SQUIBB COMPANY-12364022

PATIENT
  Age: 69 Year
  Sex: Female
  Weight: 75 kg

DRUGS (3)
  1. GLUCOVANCE [Suspect]
     Indication: DIABETES MELLITUS
     Dosage: DOSE REGIMEN: ONE TAB IN MORING, TWO IN EVENING; DURATION OF THERAPY: ^COUPLE OF YEARS^
     Route: 048
  2. LISINOPRIL [Concomitant]
     Dates: end: 20030801
  3. LOVASTATIN [Concomitant]
     Dates: end: 20030801

REACTIONS (1)
  - COUGH [None]
